FAERS Safety Report 21204150 (Version 3)
Quarter: 2025Q3

REPORT INFORMATION
  Report Type: Spontaneous
  Country: EU (occurrence: EU)
  Receive Date: 20220812
  Receipt Date: 20250808
  Transmission Date: 20251021
  Serious: Yes (Other)
  Sender: AUROBINDO
  Company Number: EU-ORG100013321-2022000691

PATIENT
  Age: 55 Year
  Sex: Male

DRUGS (3)
  1. CEFIXIME [Suspect]
     Active Substance: CEFIXIME
     Indication: Nocardiosis
     Route: 065
  2. CLARITHROMYCIN [Suspect]
     Active Substance: CLARITHROMYCIN
     Indication: Nocardiosis
     Route: 065
  3. SULFAMETHOXAZOLE\TRIMETHOPRIM [Suspect]
     Active Substance: SULFAMETHOXAZOLE\TRIMETHOPRIM
     Indication: Nocardiosis
     Route: 065

REACTIONS (4)
  - Gastrointestinal pain [Unknown]
  - Chills [Unknown]
  - Respiratory failure [Unknown]
  - Pyrexia [Unknown]
